FAERS Safety Report 20817826 (Version 1)
Quarter: 2022Q2

REPORT INFORMATION
  Report Type: Spontaneous
  Country: ES (occurrence: ES)
  Receive Date: 20220512
  Receipt Date: 20220512
  Transmission Date: 20220720
  Serious: Yes (Hospitalization)
  Sender: FDA-Public Use
  Company Number: None

PATIENT
  Age: 70 Year
  Sex: Male

DRUGS (5)
  1. ALLOPURINOL [Suspect]
     Active Substance: ALLOPURINOL
     Indication: Hyperuricaemia
     Dosage: ALOPURINOL (318A), UNIT DOSE: 300 MG, FREQUENCY TIME : 1 DAY, DURATION : 9 YEARS
     Route: 048
     Dates: start: 2012, end: 20211028
  2. OMEPRAZOLE [Suspect]
     Active Substance: OMEPRAZOLE
     Indication: Prophylaxis
     Dosage: OMEPRAZOL (2141A), UNIT DOSE: 20 MG, FREQUENCY TIME : 1 DAY, DURATION : 30 DAYS
     Route: 048
     Dates: start: 20210929, end: 20211028
  3. METAMIZOLE [Suspect]
     Active Substance: METAMIZOLE
     Indication: Pain
     Dosage: METAMIZOL (111A), UNIT DOSE: 575 MG, FREQUENCY TIME : 8 HRS, DURATION : 30 DAYS
     Route: 048
     Dates: start: 20210928, end: 20211027
  4. CLINDAMYCIN PHOSPHATE [Suspect]
     Active Substance: CLINDAMYCIN PHOSPHATE
     Indication: Postoperative wound infection
     Dosage: CLINDAMICINA FOSFATO (616FO), UNIT DOSE: 300 MG, FREQUENCY TIME : 6 HRS, DURATION : 15 DAYS
     Route: 048
     Dates: start: 20211011, end: 20211025
  5. CIPROFLOXACIN [Concomitant]
     Active Substance: CIPROFLOXACIN
     Indication: Postoperative wound infection
     Dosage: CIPROFLOXACINO (2049A), UNIT DOSE: 500 MG, FREQUENCY TIME : 12 HRS, DURATION : 16 DAYS
     Route: 048
     Dates: start: 20211011, end: 20211026

REACTIONS (1)
  - Drug reaction with eosinophilia and systemic symptoms [Recovered/Resolved]

NARRATIVE: CASE EVENT DATE: 20211026
